FAERS Safety Report 5149165-7 (Version None)
Quarter: 2006Q4

REPORT INFORMATION
  Report Type: 
  Country: None (occurrence: None)
  Receive Date: 20061113
  Receipt Date: 20060821
  Transmission Date: 20070319
  Serious: Yes (Hospitalization)
  Sender: FDA-Public Use
  Company Number: US-GLAXOSMITHKLINE-A0617463A

PATIENT
  Age: 82 Year
  Sex: Female
  Weight: 44.5 kg

DRUGS (7)
  1. COREG [Suspect]
     Route: 048
     Dates: start: 20040401
  2. SYNTHROID [Concomitant]
  3. PRAVACHOL [Concomitant]
  4. ASACOL [Concomitant]
  5. PRILOSEC [Concomitant]
  6. ALLEGRA [Concomitant]
  7. MIRTAZAPINE [Concomitant]

REACTIONS (3)
  - DIZZINESS [None]
  - FATIGUE [None]
  - SYNCOPE [None]
